FAERS Safety Report 5137153-6 (Version None)
Quarter: 2006Q4

REPORT INFORMATION
  Report Type: 
  Country: None (occurrence: None)
  Receive Date: 20061030
  Receipt Date: 20050901
  Transmission Date: 20070319
  Serious: No
  Sender: FDA-Public Use
  Company Number: US-GLAXOSMITHKLINE-A0572735A

PATIENT
  Age: 49 Year
  Sex: Female
  Weight: 122.8 kg

DRUGS (4)
  1. ADVAIR HFA [Suspect]
     Indication: ASTHMA
     Dosage: 1PUFF PER DAY
     Route: 055
     Dates: start: 20040301
  2. FLONASE [Concomitant]
  3. ACCOLATE [Concomitant]
  4. PROTONIX [Concomitant]

REACTIONS (1)
  - VOCAL CORD DISORDER [None]
